FAERS Safety Report 14797634 (Version 1)
Quarter: 2018Q2

REPORT INFORMATION
  Report Type: Spontaneous
  Country: AU (occurrence: AU)
  Receive Date: 20180424
  Receipt Date: 20180424
  Transmission Date: 20180711
  Serious: Yes (Other)
  Sender: FDA-Public Use
  Company Number: AU-BEH-2018089937

PATIENT
  Age: 68 Year
  Sex: Female

DRUGS (3)
  1. PRIVIGEN [Suspect]
     Active Substance: HUMAN IMMUNOGLOBULIN G
     Indication: POLYMYOSITIS
     Dosage: 70 G, 6 WEEKLY
     Route: 065
  2. ASPIRIN. [Concomitant]
     Active Substance: ASPIRIN
     Route: 065
  3. CARDIZEM [Concomitant]
     Active Substance: DILTIAZEM HYDROCHLORIDE
     Route: 065

REACTIONS (9)
  - Trigeminal neuralgia [Recovering/Resolving]
  - Paraesthesia [Unknown]
  - Headache [Unknown]
  - Adverse drug reaction [Unknown]
  - Unevaluable event [Unknown]
  - Brain stem infarction [Unknown]
  - Eyelid ptosis [Recovered/Resolved]
  - Pain [Recovering/Resolving]
  - Facial paresis [Recovering/Resolving]
